FAERS Safety Report 9593996 (Version 6)
Quarter: 2013Q4

REPORT INFORMATION
  Report Type: Spontaneous
  Country: US (occurrence: US)
  Receive Date: 20131004
  Receipt Date: 20131114
  Transmission Date: 20140711
  Serious: Yes (Death, Hospitalization, Other)
  Sender: FDA-Public Use
  Company Number: US-JNJFOC-20131001746

PATIENT
  Sex: Female
  Weight: 83.46 kg

DRUGS (8)
  1. XARELTO [Suspect]
     Indication: CARDIOMYOPATHY
     Route: 048
  2. XARELTO [Suspect]
     Indication: CEREBROVASCULAR ACCIDENT PROPHYLAXIS
     Route: 048
  3. XARELTO [Suspect]
     Indication: ATRIAL FLUTTER
     Route: 048
  4. PLAVIX [Suspect]
     Indication: PRODUCT USED FOR UNKNOWN INDICATION
     Route: 065
  5. METOPROLOL [Concomitant]
     Route: 065
  6. AMIODARONE [Concomitant]
     Indication: CARDIOMYOPATHY
     Route: 065
  7. AMIODARONE [Concomitant]
     Indication: ATRIAL FLUTTER
     Route: 065
  8. ATORVASTATIN [Concomitant]
     Dosage: AT BED TIME
     Route: 065

REACTIONS (12)
  - Cardiac arrest [Fatal]
  - Pneumonia [Unknown]
  - Ischaemic cardiomyopathy [Unknown]
  - Pleural effusion [Unknown]
  - Anaemia [Unknown]
  - Hypothermia [Unknown]
  - Splenic haemorrhage [Unknown]
  - Hospitalisation [Unknown]
  - Cardiac ventricular thrombosis [Unknown]
  - Hypotension [Unknown]
  - Pulmonary oedema [Unknown]
  - Renal failure acute [Unknown]
